FAERS Safety Report 9539076 (Version 3)
Quarter: 2013Q4

REPORT INFORMATION
  Report Type: Spontaneous
  Country: US (occurrence: US)
  Receive Date: 20130920
  Receipt Date: 20131203
  Transmission Date: 20140711
  Serious: No
  Sender: FDA-Public Use
  Company Number: US-PFIZER INC-2013267373

PATIENT
  Age: 16 Year
  Sex: Female
  Weight: 47.62 kg

DRUGS (1)
  1. CLINDAMYCIN PHOSPHATE [Suspect]
     Indication: ACNE
     Dosage: UNK, 1X/DAY
     Route: 061
     Dates: start: 20130905, end: 201309

REACTIONS (4)
  - Skin burning sensation [Recovering/Resolving]
  - Urticaria [Recovering/Resolving]
  - Erythema [Recovering/Resolving]
  - Application site reaction [Recovering/Resolving]
